FAERS Safety Report 5816348-X (Version None)
Quarter: 2008Q3

REPORT INFORMATION
  Report Type: 
  Country: None (occurrence: None)
  Receive Date: 20080721
  Receipt Date: 20080118
  Transmission Date: 20090109
  Serious: No
  Sender: FDA-Public Use
  Company Number: US-BAUSCH-2008BL000239

PATIENT
  Age: 74 Year
  Sex: Female

DRUGS (2)
  1. OPCON-A [Suspect]
     Indication: EYE ALLERGY
     Route: 047
     Dates: start: 20080117, end: 20080117
  2. SOOTHE [Concomitant]
     Indication: KERATOCONJUNCTIVITIS SICCA
     Route: 047
     Dates: start: 20060101

REACTIONS (2)
  - ABNORMAL SENSATION IN EYE [None]
  - EYE PAIN [None]
